FAERS Safety Report 12455327 (Version 1)
Quarter: 2016Q2

REPORT INFORMATION
  Report Type: Other
  Country: CA (occurrence: CA)
  Receive Date: 20160610
  Receipt Date: 20160610
  Transmission Date: 20160815
  Serious: Yes (Other)
  Sender: FDA-Public Use
  Company Number: CA-APOTEX-2016AP008917

PATIENT
  Age: 61 Year
  Sex: Male
  Weight: 85 kg

DRUGS (2)
  1. APO-MOMETASONE [Suspect]
     Active Substance: MOMETASONE FUROATE
     Indication: HYPERSENSITIVITY
  2. APO-MOMETASONE [Suspect]
     Active Substance: MOMETASONE FUROATE
     Indication: SINUS DISORDER
     Dosage: 2 MG/ML, BID
     Route: 055

REACTIONS (4)
  - Asthenia [Unknown]
  - Tremor [Unknown]
  - Dizziness [Unknown]
  - Presyncope [Unknown]
